FAERS Safety Report 8110260-1 (Version None)
Quarter: 2012Q1

REPORT INFORMATION
  Report Type: 
  Country: None (occurrence: None)
  Receive Date: 20120202
  Receipt Date: 20120125
  Transmission Date: 20120608
  Serious: Yes (Death, Hospitalization)
  Sender: FDA-Public Use
  Company Number: JP-BAXTER-2011BH040390

PATIENT
  Age: 87 Year
  Sex: Female

DRUGS (7)
  1. ACETAMINOPHEN [Concomitant]
     Indication: ANALGESIC THERAPY
     Route: 048
     Dates: start: 20081227, end: 20081227
  2. ALLOPURINOL [Concomitant]
     Indication: HYPERURICAEMIA
     Route: 048
     Dates: start: 20081219, end: 20111127
  3. CYCLOPHOSPHAMIDE [Suspect]
     Indication: WALDENSTROM'S MACROGLOBULINAEMIA
     Route: 048
     Dates: start: 20111005, end: 20111127
  4. CYCLOPHOSPHAMIDE [Suspect]
     Route: 048
     Dates: start: 20081219, end: 20111004
  5. MAXIPIME [Concomitant]
     Indication: PYREXIA
     Route: 041
     Dates: start: 20081227, end: 20081227
  6. RABEPRAZOLE SODIUM [Concomitant]
     Indication: GASTROINTESTINAL DISORDER
     Route: 048
     Dates: start: 20081210, end: 20111127
  7. PL GRAN. [Concomitant]
     Indication: NASOPHARYNGITIS
     Route: 048
     Dates: start: 20081226, end: 20081227

REACTIONS (2)
  - FRACTURE [None]
  - ACUTE HEPATIC FAILURE [None]
